FAERS Safety Report 10227462 (Version 3)
Quarter: 2014Q2

REPORT INFORMATION
  Report Type: Spontaneous
  Country: JP (occurrence: JP)
  Receive Date: 20140610
  Receipt Date: 20140617
  Transmission Date: 20141212
  Serious: Yes (Death, Life-Threatening, Hospitalization, Other)
  Sender: FDA-Public Use
  Company Number: PHHY2014JP063523

PATIENT
  Age: 75 Year
  Sex: Male
  Weight: 65 kg

DRUGS (12)
  1. AFINITOR [Suspect]
     Indication: RENAL CELL CARCINOMA
     Dosage: 5 MG, DAILY
     Route: 048
     Dates: start: 20140408, end: 20140505
  2. DECADRON                                /CAN/ [Suspect]
     Indication: RENAL CANCER
     Dosage: 0.5 MG, DAILY
     Route: 048
     Dates: start: 20140305, end: 20140505
  3. EQUA [Concomitant]
     Indication: DIABETES MELLITUS
     Dosage: 50 MG, UNK
     Route: 048
     Dates: end: 20140505
  4. LOXONIN [Concomitant]
     Indication: PAIN
     Dosage: 180 MG, UNK
     Route: 048
     Dates: start: 20140207
  5. METHYCOBAL [Concomitant]
     Indication: HYPOAESTHESIA
     Dosage: 1500 UG, UNK
     Route: 048
     Dates: end: 20140505
  6. AMARYL [Concomitant]
     Indication: DIABETES MELLITUS
     Dosage: 2 MG, UNK
     Route: 048
     Dates: end: 20140505
  7. VOGLIBOSE [Concomitant]
     Indication: DIABETES MELLITUS
     Dosage: 3 DF, UNK
     Route: 048
     Dates: end: 20140505
  8. NORVASC [Concomitant]
     Indication: HYPERTENSION
     Dosage: 5 MG, UNK
     Route: 048
     Dates: end: 20140505
  9. ARTIST [Concomitant]
     Indication: HYPERTENSION
     Dosage: 10 MG, UNK
     Route: 048
     Dates: end: 20140505
  10. BAYASPIRIN [Concomitant]
     Indication: HYPERTENSION
     Dosage: 100 MG, UNK
     Route: 048
     Dates: end: 20140109
  11. TAKEPRON [Concomitant]
     Dosage: 15 MG, UNK
     Route: 048
  12. MAZULENIN [Concomitant]
     Indication: STOMATITIS
     Dosage: 4 DF, UNK
     Route: 048
     Dates: start: 20140327, end: 20140505

REACTIONS (11)
  - Bronchopulmonary aspergillosis [Fatal]
  - Pneumocystis jirovecii pneumonia [Fatal]
  - Cough [Fatal]
  - Dyspnoea [Fatal]
  - Cell marker increased [Fatal]
  - Respiratory failure [Fatal]
  - Interstitial lung disease [Fatal]
  - Blood albumin decreased [Unknown]
  - Blood glucose increased [Unknown]
  - Platelet count decreased [Unknown]
  - Lymphocyte count decreased [Unknown]
